FAERS Safety Report 23725922 (Version 1)
Quarter: 2024Q2

REPORT INFORMATION
  Report Type: Spontaneous
  Country: TW (occurrence: TW)
  Receive Date: 20240410
  Receipt Date: 20240410
  Transmission Date: 20240716
  Serious: Yes (Hospitalization)
  Sender: FDA-Public Use
  Company Number: TW-BIOCRYST PHARMACEUTICALS, INC.-2024BCR00365

PATIENT
  Age: 5 Year
  Sex: Male

DRUGS (1)
  1. RAPIACTA [Suspect]
     Active Substance: PERAMIVIR
     Indication: Influenza
     Dosage: 349 MG, ONCE
     Route: 042
     Dates: start: 20230814, end: 20230814

REACTIONS (2)
  - Pruritus [Recovered/Resolved]
  - Rash [Recovered/Resolved]

NARRATIVE: CASE EVENT DATE: 20230816
